FAERS Safety Report 4756291-0 (Version None)
Quarter: 2005Q3

REPORT INFORMATION
  Report Type: 
  Country: None (occurrence: None)
  Receive Date: 20050830
  Receipt Date: 20050523
  Transmission Date: 20060218
  Serious: No
  Sender: FDA-Public Use
  Company Number: US-GLAXOSMITHKLINE-A0559742A

PATIENT
  Age: 36 Year
  Sex: Female

DRUGS (9)
  1. WELLBUTRIN XL [Suspect]
     Indication: DEPRESSION
     Dosage: 300MG TWICE PER DAY
     Route: 048
     Dates: start: 20050523
  2. PROZAC [Concomitant]
  3. ADVICOR [Concomitant]
  4. FENTANYL [Concomitant]
  5. VICODIN ES [Concomitant]
  6. METFORMIN [Concomitant]
  7. PHENERGAN [Concomitant]
  8. VALIUM [Concomitant]
  9. SOMA [Concomitant]

REACTIONS (3)
  - FEELING HOT [None]
  - NERVOUSNESS [None]
  - OVERDOSE [None]
